FAERS Safety Report 5167644-3 (Version None)
Quarter: 2006Q4

REPORT INFORMATION
  Report Type: 
  Country: None (occurrence: None)
  Receive Date: 20061204
  Receipt Date: 20061204
  Transmission Date: 20070319
  Serious: Yes (Hospitalization)
  Sender: FDA-Public Use
  Company Number: None

PATIENT
  Sex: Female
  Weight: 52.3 kg

DRUGS (3)
  1. CARBOPLATIN [Suspect]
     Indication: TONGUE NEOPLASM MALIGNANT STAGE UNSPECIFIED
     Dosage: AUC 6 Q28D  IV
     Route: 042
     Dates: start: 20061128
  2. TAXOL [Suspect]
     Indication: TONGUE NEOPLASM MALIGNANT STAGE UNSPECIFIED
     Dosage: 100MG/M2 QWEEK IV
     Route: 042
     Dates: start: 20061128
  3. CETUXIMAB  250MG  IV QWEEK  11/28/2006 [Suspect]

REACTIONS (1)
  - PANCREATITIS [None]
